FAERS Safety Report 7555966-8 (Version None)
Quarter: 2011Q2

REPORT INFORMATION
  Report Type: 
  Country: None (occurrence: None)
  Receive Date: 20110619
  Receipt Date: 20110607
  Transmission Date: 20111010
  Serious: Yes (Hospitalization, Other)
  Sender: FDA-Public Use
  Company Number: US-ELI_LILLY_AND_COMPANY-US201106003045

PATIENT
  Sex: Male

DRUGS (14)
  1. ASPIRIN [Concomitant]
  2. APIDRA [Concomitant]
  3. LANTUS [Concomitant]
  4. CARVEDILOL [Concomitant]
  5. VITAMIN A [Concomitant]
  6. COUMADIN [Concomitant]
  7. PREDNISONE [Concomitant]
  8. MULTI-VITAMIN [Concomitant]
  9. CALCIUM CARBONATE [Concomitant]
  10. SIMVASTATIN [Concomitant]
  11. PREVACID [Concomitant]
  12. FORTEO [Suspect]
     Indication: SPINAL FRACTURE
     Dosage: 20 UG, QD
     Dates: start: 20090901
  13. LOSARTAN POTASSIUM [Concomitant]
  14. FUROSEMIDE [Concomitant]

REACTIONS (9)
  - CARDIAC FAILURE CONGESTIVE [None]
  - HOSPITALISATION [None]
  - PAIN [None]
  - ORGANISING PNEUMONIA [None]
  - BLOOD GLUCOSE DECREASED [None]
  - CELLULITIS [None]
  - DIABETES MELLITUS INADEQUATE CONTROL [None]
  - THROMBOSIS [None]
  - PNEUMONIA [None]
